FAERS Safety Report 8146081-3 (Version None)
Quarter: 2012Q1

REPORT INFORMATION
  Report Type: 
  Country: None (occurrence: None)
  Receive Date: 20120217
  Receipt Date: 20120217
  Transmission Date: 20120608
  Serious: Yes (Death)
  Sender: FDA-Public Use
  Company Number: JP-B.I. PHARMACEUTICALS,INC./RIDGEFIELD-2012-BP-03081NB

PATIENT
  Age: 80 Year
  Sex: Male
  Weight: 44.6 kg

DRUGS (1)
  1. PRADAXA [Suspect]
     Indication: EMBOLIC STROKE
     Dosage: 220 MG
     Route: 048
     Dates: start: 20111109, end: 20111116

REACTIONS (1)
  - CEREBRAL HAEMORRHAGE [None]
